FAERS Safety Report 9657065 (Version 1)
Quarter: 2013Q4

REPORT INFORMATION
  Report Type: Spontaneous
  Country: US (occurrence: None)
  Receive Date: 20131029
  Receipt Date: 20131029
  Transmission Date: 20140711
  Serious: Yes (Life-Threatening, Hospitalization)
  Sender: FDA-Public Use
  Company Number: None

PATIENT
  Age: 55 Year
  Sex: Male
  Weight: 90.8 kg

DRUGS (7)
  1. XARELTO [Suspect]
     Indication: ATRIAL FIBRILLATION
     Route: 048
     Dates: start: 20131007, end: 20131009
  2. LISINOPRIL (PRINIVIL/ ZESTRIL) [Concomitant]
  3. METOPROLOL SUCCINATE XL (TOPROL XL) [Concomitant]
  4. FLECAINIDE (TAMBOCOR) [Concomitant]
  5. ROSUVASTATIN (CRESTOR) [Concomitant]
  6. GIPIZIDE (GLUCOTROL) [Concomitant]
  7. METFORMIN (GLUCOPHAGE) [Concomitant]

REACTIONS (2)
  - Subdural haematoma [None]
  - Transient ischaemic attack [None]
